FAERS Safety Report 4594893-5 (Version None)
Quarter: 2005Q1

REPORT INFORMATION
  Report Type: 
  Country: None (occurrence: None)
  Receive Date: 20050224
  Receipt Date: 20040614
  Transmission Date: 20050727
  Serious: Yes (Life-Threatening, Hospitalization)
  Sender: FDA-Public Use
  Company Number: GXKR2004DE00718

PATIENT
  Age: 79 Year
  Sex: Female

DRUGS (7)
  1. DICLOFENAC (NGX) (DICLOFENAC) [Suspect]
     Dosage: ONE SINGLE DOSE, INTRAMUSCULAR
     Route: 030
  2. METFORMIN HCL [Suspect]
     Indication: DIABETES MELLITUS NON-INSULIN-DEPENDENT
     Dosage: 850 MG, BID, ORAL
     Route: 048
  3. ASPIRIN [Concomitant]
  4. GLUCOBAY [Concomitant]
  5. LASIX [Concomitant]
  6. TAVEGIL/GRF/(CLEMASTINE) [Concomitant]
  7. SIMVASTATIN [Concomitant]

REACTIONS (5)
  - ABDOMINAL PAIN [None]
  - HAEMODIALYSIS [None]
  - HAEMODYNAMIC INSTABILITY [None]
  - LACTIC ACIDOSIS [None]
  - RENAL FAILURE ACUTE [None]
